FAERS Safety Report 9014830 (Version 2)
Quarter: 2013Q1

REPORT INFORMATION
  Report Type: Spontaneous
  Country: US (occurrence: US)
  Receive Date: 20130116
  Receipt Date: 20130313
  Transmission Date: 20140127
  Serious: No
  Sender: FDA-Public Use
  Company Number: US-009507513-1301USA003328

PATIENT
  Age: 58 Year
  Sex: Male
  Weight: 74.83 kg

DRUGS (6)
  1. VICTRELIS [Suspect]
     Dosage: 800 MG, TID
     Route: 048
  2. RIBAVIRIN [Suspect]
  3. PEGASYS [Suspect]
  4. ASCORBIC ACID [Concomitant]
  5. VITAMINS (UNSPECIFIED) [Concomitant]
  6. VITAMIN A [Concomitant]

REACTIONS (2)
  - Rash pruritic [Unknown]
  - White blood cell count decreased [Unknown]
